FAERS Safety Report 21144150 (Version 6)
Quarter: 2023Q4

REPORT INFORMATION
  Report Type: Spontaneous
  Country: JP (occurrence: None)
  Receive Date: 20220728
  Receipt Date: 20231011
  Transmission Date: 20240110
  Serious: Yes (Death, Hospitalization, Other)
  Sender: FDA-Public Use
  Company Number: 2022A264234

PATIENT
  Age: 73 Year
  Sex: Female
  Weight: 38 kg

DRUGS (3)
  1. TAGRISSO [Suspect]
     Active Substance: OSIMERTINIB
     Indication: Non-small cell lung cancer
     Route: 048
     Dates: start: 20181101, end: 20191104
  2. IRESSA [Suspect]
     Active Substance: GEFITINIB
     Indication: Lung adenocarcinoma
     Route: 048
  3. HUSTAZOL [Concomitant]
     Indication: Cough
     Route: 048

REACTIONS (6)
  - Small cell lung cancer [Fatal]
  - Metastases to central nervous system [Fatal]
  - Metastases to liver [Fatal]
  - Disseminated intravascular coagulation [Unknown]
  - Gastrin-releasing peptide precursor increased [Fatal]
  - Rash [Recovering/Resolving]

NARRATIVE: CASE EVENT DATE: 20181004
